FAERS Safety Report 9521828 (Version 1)
Quarter: 2013Q3

REPORT INFORMATION
  Report Type: Spontaneous
  Country: US (occurrence: None)
  Receive Date: 20130911
  Receipt Date: 20130911
  Transmission Date: 20140515
  Serious: No
  Sender: FDA-Public Use
  Company Number: AEUSA201300201

PATIENT
  Age: 50 Year
  Sex: Female
  Weight: 103.42 kg

DRUGS (13)
  1. GAMUNEX-C [Suspect]
     Indication: DEMYELINATING POLYNEUROPATHY
     Route: 042
     Dates: start: 201211
  2. AMITRIPTYLINE [Concomitant]
  3. GABAPENTIN [Concomitant]
  4. INSULIN [Concomitant]
  5. LISINOPRIL [Concomitant]
  6. METHOTREXATE [Concomitant]
  7. OMEPRAZOLE [Concomitant]
  8. ZOCOR [Concomitant]
  9. TRAMADOL [Concomitant]
  10. PARACETAMOL [Concomitant]
  11. DIPHENHYDRAMINE HYDROCHLORIDE [Concomitant]
  12. PANGLOBULIN [Concomitant]
  13. GAMUNEX [Concomitant]

REACTIONS (1)
  - Pyrexia [None]
